FAERS Safety Report 5221579-6 (Version None)
Quarter: 2007Q1

REPORT INFORMATION
  Report Type: 
  Country: None (occurrence: None)
  Receive Date: 20070127
  Receipt Date: 20070118
  Transmission Date: 20070707
  Serious: Yes (Other)
  Sender: FDA-Public Use
  Company Number: US-ABBOTT-06P-163-0350767-00

PATIENT
  Sex: Female

DRUGS (7)
  1. DEPAKOTE ER [Suspect]
     Indication: CONVULSION
     Dates: start: 20060709
  2. DEPAKOTE ER [Suspect]
     Dates: start: 20061030
  3. AVONEX [Suspect]
     Indication: MULTIPLE SCLEROSIS
     Dates: start: 20060718, end: 20060801
  4. AVONEX [Suspect]
     Dates: start: 20060801, end: 20060901
  5. AVONEX [Suspect]
     Dates: start: 20060901
  6. KEPPRA [Suspect]
     Indication: CONVULSION
     Dates: start: 20060709
  7. ORAL CONTRACEPTIVE NOS [Concomitant]
     Indication: DRUG USE FOR UNKNOWN INDICATION

REACTIONS (3)
  - ECTOPIC PREGNANCY [None]
  - MULTIPLE SCLEROSIS [None]
  - SOMNOLENCE [None]
